FAERS Safety Report 5055160-9 (Version None)
Quarter: 2006Q3

REPORT INFORMATION
  Report Type: 
  Country: None (occurrence: None)
  Receive Date: 20060717
  Receipt Date: 20060705
  Transmission Date: 20061208
  Serious: Yes (Other)
  Sender: FDA-Public Use
  Company Number: 2006SS000059

PATIENT
  Age: 79 Year
  Sex: Female
  Weight: 95.2554 kg

DRUGS (3)
  1. MYOBLOC [Suspect]
     Indication: APRAXIA
     Dosage: SEE IMAGE, INTRAMUSCULAR
     Route: 030
     Dates: start: 20060630, end: 20060630
  2. WARFARIN SODIUM [Concomitant]
  3. MULTIVITAMIN [Concomitant]

REACTIONS (7)
  - CONTUSION [None]
  - DRUG INEFFECTIVE [None]
  - EYE DISCHARGE [None]
  - EYE DISORDER [None]
  - HYPERSENSITIVITY [None]
  - OFF LABEL USE [None]
  - PURULENCE [None]
